FAERS Safety Report 25080618 (Version 1)
Quarter: 2025Q1

REPORT INFORMATION
  Report Type: Spontaneous
  Country: US (occurrence: US)
  Receive Date: 20250315
  Receipt Date: 20250315
  Transmission Date: 20250409
  Serious: No
  Sender: SANOFI AVENTIS
  Company Number: US-SA-2025SA074751

PATIENT
  Age: 65 Year
  Sex: Male

DRUGS (2)
  1. DUPIXENT [Suspect]
     Active Substance: DUPILUMAB
     Indication: Eczema
     Dosage: 300 MG, QOW
     Route: 058
     Dates: start: 202407
  2. PENICILLIN [Concomitant]
     Active Substance: PENICILLIN
     Indication: Antibiotic prophylaxis
     Dates: start: 2025

REACTIONS (4)
  - Hypertension [Unknown]
  - Acne [Recovered/Resolved]
  - Tooth extraction [Unknown]
  - Rash [Recovered/Resolved]

NARRATIVE: CASE EVENT DATE: 20250223
